FAERS Safety Report 7290790-5 (Version None)
Quarter: 2011Q1

REPORT INFORMATION
  Report Type: 
  Country: None (occurrence: None)
  Receive Date: 20110214
  Receipt Date: 20110208
  Transmission Date: 20110831
  Serious: Yes (Death)
  Sender: FDA-Public Use
  Company Number: CH-ROCHE-758759

PATIENT
  Age: 77 Year
  Sex: Male

DRUGS (2)
  1. IRON [Concomitant]
  2. METHOXY POLYETHYLENE GLYCOL-EPOETIN BETA [Suspect]
     Route: 065
     Dates: start: 20100209

REACTIONS (1)
  - DEATH [None]
